FAERS Safety Report 24001735 (Version 1)
Quarter: 2024Q2

REPORT INFORMATION
  Report Type: Report from Study
  Country: US (occurrence: US)
  Receive Date: 20240622
  Receipt Date: 20240622
  Transmission Date: 20240716
  Serious: Yes (Other)
  Sender: FDA-Public Use
  Company Number: US-ABBVIE-5807971

PATIENT
  Age: 38 Year
  Sex: Male

DRUGS (2)
  1. CYCLOSPORINE [Suspect]
     Active Substance: CYCLOSPORINE
     Indication: Prophylaxis against graft versus host disease
     Route: 048
  2. MYCOPHENOLATE MOFETIL [Suspect]
     Active Substance: MYCOPHENOLATE MOFETIL
     Indication: Prophylaxis against graft versus host disease
     Route: 065

REACTIONS (6)
  - Acute graft versus host disease in skin [Unknown]
  - Graft versus host disease in skin [Unknown]
  - Chronic graft versus host disease oral [Unknown]
  - Chronic graft versus host disease in eye [Unknown]
  - Chronic graft versus host disease in lung [Unknown]
  - Chronic graft versus host disease [Unknown]
